FAERS Safety Report 9928382 (Version 3)
Quarter: 2014Q3

REPORT INFORMATION
  Report Type: Spontaneous
  Country: US (occurrence: None)
  Receive Date: 20140224
  Receipt Date: 20140716
  Transmission Date: 20150326
  Serious: Yes (Life-Threatening)
  Sender: FDA-Public Use
  Company Number: AG-2014-000553

PATIENT
  Age: 82 Year
  Sex: Female

DRUGS (11)
  1. CHLORAMBUCIL (UNKNOWN) [Suspect]
     Active Substance: CHLORAMBUCIL
     Indication: CHRONIC LYMPHOCYTIC LEUKAEMIA
     Dates: start: 20131017, end: 20131017
  2. ZYLOPRIM [Concomitant]
     Active Substance: ALLOPURINOL
  3. ATENOLOL. [Concomitant]
     Active Substance: ATENOLOL
  4. BENADRYL [Concomitant]
     Active Substance: DIPHENHYDRAMINE HYDROCHLORIDE
  5. IMODIUM A-D [Concomitant]
     Active Substance: LOPERAMIDE HYDROCHLORIDE
  6. METFORMIN [Concomitant]
     Active Substance: METFORMIN HYDROCHLORIDE
  7. BARLEY. [Concomitant]
     Active Substance: BARLEY
  8. OBINUTUZUMAB (INFUSION) [Suspect]
     Active Substance: OBINUTUZUMAB
     Indication: CHRONIC LYMPHOCYTIC LEUKAEMIA
     Dates: start: 20131017, end: 20131017
  9. VASOTEC [Concomitant]
     Active Substance: ENALAPRIL MALEATE
  10. TYLENOL [Concomitant]
     Active Substance: ACETAMINOPHEN
  11. DEXAMETHASONE. [Concomitant]
     Active Substance: DEXAMETHASONE

REACTIONS (6)
  - Infusion related reaction [None]
  - Headache [None]
  - Vomiting [None]
  - Hypertension [None]
  - Rash [None]
  - Nausea [None]

NARRATIVE: CASE EVENT DATE: 20131017
